FAERS Safety Report 7939256-7 (Version None)
Quarter: 2011Q4

REPORT INFORMATION
  Report Type: 
  Country: None (occurrence: None)
  Receive Date: 20111124
  Receipt Date: 20111116
  Transmission Date: 20120403
  Serious: Yes (Other)
  Sender: FDA-Public Use
  Company Number: PHHY2011ES101275

PATIENT

DRUGS (2)
  1. ENOXAPARIN SODIUM [Suspect]
     Dosage: UNK
  2. BEMIPARIN NATRIUM [Suspect]
     Dosage: UNK

REACTIONS (5)
  - SKIN PLAQUE [None]
  - ECZEMA [None]
  - DRUG HYPERSENSITIVITY [None]
  - PRURITUS [None]
  - TYPE IV HYPERSENSITIVITY REACTION [None]
